FAERS Safety Report 17332723 (Version 2)
Quarter: 2020Q1

REPORT INFORMATION
  Report Type: Report from Study
  Country: US (occurrence: US)
  Receive Date: 20200128
  Receipt Date: 20200202
  Transmission Date: 20200409
  Serious: Yes (Hospitalization, Other)
  Sender: FDA-Public Use
  Company Number: US-BRISTOL-MYERS SQUIBB COMPANY-BMS-2020-005466

PATIENT
  Age: 68 Year
  Sex: Male
  Weight: 77.4 kg

DRUGS (2)
  1. NIVOLUMAB [Suspect]
     Active Substance: NIVOLUMAB
     Indication: MALIGNANT MELANOMA
     Dosage: 85 MILLIGRAM
     Route: 042
     Dates: start: 20170328, end: 20170328
  2. IPILIMUMAB [Suspect]
     Active Substance: IPILIMUMAB
     Indication: MALIGNANT MELANOMA
     Dosage: 256 MILLIGRAM
     Route: 042
     Dates: start: 20170328

REACTIONS (4)
  - Hyperuricaemia [Unknown]
  - Diarrhoea [Recovering/Resolving]
  - Lipase increased [Unknown]
  - Colitis [Recovering/Resolving]

NARRATIVE: CASE EVENT DATE: 20170418
